FAERS Safety Report 12045869 (Version 2)
Quarter: 2016Q1

REPORT INFORMATION
  Report Type: Spontaneous
  Country: US (occurrence: US)
  Receive Date: 20160208
  Receipt Date: 20160330
  Transmission Date: 20160526
  Serious: No
  Sender: FDA-Public Use
  Company Number: US-SHIRE-US201600804

PATIENT
  Age: 61 Year
  Sex: Female
  Weight: 117.1 kg

DRUGS (8)
  1. FOSRENOL [Suspect]
     Active Substance: LANTHANUM CARBONATE
     Indication: NEPHROPATHY
     Dosage: 3000 MG, 3X/DAY:TID
     Route: 048
     Dates: start: 20160121
  2. LISINOPRIL. [Concomitant]
     Active Substance: LISINOPRIL
     Indication: HYPERTENSION
     Dosage: 2.5 MG, 1X/DAY:QD
     Route: 065
  3. CRESTOR [Concomitant]
     Active Substance: ROSUVASTATIN CALCIUM
     Indication: HYPERLIPIDAEMIA
     Dosage: 20 MG, 1X/DAY:QD
     Route: 065
  4. FOSRENOL [Suspect]
     Active Substance: LANTHANUM CARBONATE
     Indication: HYPERPHOSPHATAEMIA
     Dosage: 1000 MG, 3X/DAY:TID
     Route: 048
  5. FOSRENOL [Suspect]
     Active Substance: LANTHANUM CARBONATE
     Indication: HYPERPHOSPHATAEMIA
     Dosage: 750 MG, 3X/DAY:TID
     Route: 048
     Dates: start: 20151113
  6. LANTUS [Concomitant]
     Active Substance: INSULIN GLARGINE
     Indication: TYPE 2 DIABETES MELLITUS
     Dosage: 30 UNITS, 2X/DAY:BID
     Route: 065
  7. FOSRENOL [Suspect]
     Active Substance: LANTHANUM CARBONATE
     Indication: NEPHROPATHY
  8. SENSIPAR [Concomitant]
     Active Substance: CINACALCET HYDROCHLORIDE
     Indication: HYPERPARATHYROIDISM SECONDARY
     Dosage: 60 MG, 1X/DAY:QD
     Route: 065

REACTIONS (2)
  - Overdose [Recovered/Resolved]
  - Blood phosphorus increased [Unknown]

NARRATIVE: CASE EVENT DATE: 20160121
